FAERS Safety Report 10109486 (Version 1)
Quarter: 2014Q2

REPORT INFORMATION
  Report Type: Spontaneous
  Country: US (occurrence: None)
  Receive Date: 20140421
  Receipt Date: 20140421
  Transmission Date: 20141212
  Serious: Yes (Other)
  Sender: FDA-Public Use
  Company Number: AEGR000358

PATIENT
  Sex: Female

DRUGS (7)
  1. JUXTAPID [Suspect]
     Indication: PRODUCT USED FOR UNKNOWN INDICATION
     Route: 048
  2. ZETIA [Suspect]
     Indication: PRODUCT USED FOR UNKNOWN INDICATION
  3. LASIX (FUROSEMIDE) [Concomitant]
  4. COREG (CARVEDILOL) [Concomitant]
  5. POTASSIUM CHLORIDE (POTASSIUM CHLORIDE) [Concomitant]
  6. BENICAR (OLMESARTAN MEDOXOMIL) [Concomitant]
  7. PLAVIX (CLOPIDOGREL BISULFATE) (CLOPIDOGREL BISULFATE) [Concomitant]

REACTIONS (2)
  - Hepatic enzyme increased [None]
  - Product used for unknown indication [None]
